FAERS Safety Report 22349460 (Version 1)
Quarter: 2023Q2

REPORT INFORMATION
  Report Type: Spontaneous
  Country: US (occurrence: US)
  Receive Date: 20230522
  Receipt Date: 20230522
  Transmission Date: 20230721
  Serious: No
  Sender: FDA-Public Use
  Company Number: US-EPICPHARMA-US-2023EPCSPO00821

PATIENT

DRUGS (1)
  1. DEXTROAMPHET SACCHARAT, AMPHET ASPARTATE, DEXTROAMPHET SULFATE AND AMP [Suspect]
     Active Substance: AMPHETAMINE ASPARTATE\AMPHETAMINE ASPARTATE MONOHYDRATE\AMPHETAMINE SULFATE\DEXTROAMPHETAMINE SACCHA
     Indication: Attention deficit hyperactivity disorder
     Route: 065

REACTIONS (11)
  - Adverse drug reaction [Unknown]
  - Hypersomnia [Unknown]
  - Fatigue [Unknown]
  - Somnolence [Unknown]
  - Appetite disorder [Unknown]
  - Nausea [Unknown]
  - Disturbance in attention [Unknown]
  - Psychomotor skills impaired [Unknown]
  - Memory impairment [Unknown]
  - Impaired quality of life [Unknown]
  - Product substitution issue [Unknown]
